FAERS Safety Report 9083473 (Version 1)
Quarter: 2013Q1

REPORT INFORMATION
  Report Type: Report from Study
  Country: US (occurrence: US)
  Receive Date: 20130131
  Receipt Date: 20130131
  Transmission Date: 20140127
  Serious: No
  Sender: FDA-Public Use
  Company Number: US-ABBOTT-12P-163-1010823-00

PATIENT
  Age: 44 Year
  Sex: Female

DRUGS (3)
  1. HUMIRA [Suspect]
     Dates: start: 20120606
  2. PREDNISONE [Concomitant]
     Indication: PSORIATIC ARTHROPATHY
     Dosage: 1 1/2 TABS DAILY
  3. METHOTREXATE [Concomitant]
     Indication: PSORIATIC ARTHROPATHY

REACTIONS (10)
  - Dry skin [Not Recovered/Not Resolved]
  - Skin fissures [Not Recovered/Not Resolved]
  - Musculoskeletal stiffness [Not Recovered/Not Resolved]
  - Skin disorder [Not Recovered/Not Resolved]
  - Skin haemorrhage [Not Recovered/Not Resolved]
  - Skin haemorrhage [Not Recovered/Not Resolved]
  - Skin haemorrhage [Not Recovered/Not Resolved]
  - Skin disorder [Not Recovered/Not Resolved]
  - Erythema [Not Recovered/Not Resolved]
  - Pain of skin [Not Recovered/Not Resolved]
